FAERS Safety Report 5766553-6 (Version None)
Quarter: 2008Q2

REPORT INFORMATION
  Report Type: 
  Country: None (occurrence: None)
  Receive Date: 20080612
  Receipt Date: 20080602
  Transmission Date: 20081010
  Serious: Yes (Other)
  Sender: FDA-Public Use
  Company Number: US-JNJFOC-20080600818

PATIENT
  Age: 70 Year
  Sex: Male

DRUGS (2)
  1. REOPRO [Suspect]
     Indication: STENT PLACEMENT
  2. HEPARIN [Concomitant]
     Indication: STENT PLACEMENT

REACTIONS (2)
  - COAGULATION TIME SHORTENED [None]
  - THROMBOSIS [None]
